FAERS Safety Report 7763155-7 (Version None)
Quarter: 2011Q3

REPORT INFORMATION
  Report Type: 
  Country: None (occurrence: None)
  Receive Date: 20110920
  Receipt Date: 20110912
  Transmission Date: 20111222
  Serious: Yes (Other)
  Sender: FDA-Public Use
  Company Number: PHEH2009US11070

PATIENT
  Sex: Male

DRUGS (18)
  1. COUMADIN [Concomitant]
  2. REVLIMID [Concomitant]
     Route: 048
  3. PRILOSEC [Concomitant]
  4. ACYCLOVIR [Concomitant]
     Dosage: 800 MG, BID
     Route: 048
  5. METHOTREXATE [Concomitant]
     Dosage: 15 MG, QW
  6. VOLTAREN [Concomitant]
     Route: 048
  7. PROZAC [Concomitant]
     Dosage: 10 MG, QD
  8. CYTOXAN [Concomitant]
     Route: 042
  9. CELEBREX [Concomitant]
     Dosage: 200 MG, QD
     Route: 048
  10. KEFLEX [Concomitant]
     Dosage: 1 DF, Q6H
     Route: 048
  11. ALLOPURINOL [Concomitant]
  12. PREDNISONE [Concomitant]
     Dosage: 40 MG, QD
  13. MELPHALAN HYDROCHLORIDE [Concomitant]
  14. LEVAQUIN [Concomitant]
     Dosage: 750 MG, QD
     Route: 048
  15. ZOMETA [Suspect]
     Indication: MULTIPLE MYELOMA
     Dosage: 2 MG, UNK
  16. ZOMETA [Suspect]
     Dosage: 4 MG, QMO
     Route: 042
  17. ATIVAN [Concomitant]
     Dosage: 1 MG, QHS
     Route: 048
  18. DECADRON [Concomitant]
     Route: 048

REACTIONS (30)
  - CHEST PAIN [None]
  - LUNG DISORDER [None]
  - RENAL FAILURE [None]
  - DYSPNOEA [None]
  - ANXIETY [None]
  - ABDOMINAL PAIN [None]
  - SPINAL COMPRESSION FRACTURE [None]
  - INJURY [None]
  - LOBAR PNEUMONIA [None]
  - OSTEOPENIA [None]
  - PYREXIA [None]
  - PARAPROTEINAEMIA [None]
  - DIARRHOEA [None]
  - INTERVERTEBRAL DISC DEGENERATION [None]
  - ANHEDONIA [None]
  - ANAEMIA [None]
  - CRYOGLOBULINAEMIA [None]
  - TOOTH DEPOSIT [None]
  - CHRONIC OBSTRUCTIVE PULMONARY DISEASE [None]
  - ATELECTASIS [None]
  - OSTEONECROSIS OF JAW [None]
  - BACK PAIN [None]
  - ARTHRITIS [None]
  - GINGIVAL BLEEDING [None]
  - EAR INFECTION [None]
  - DISABILITY [None]
  - PAIN [None]
  - COUGH [None]
  - CHILLS [None]
  - EXPOSED BONE IN JAW [None]
